FAERS Safety Report 9555713 (Version 2)
Quarter: 2013Q3

REPORT INFORMATION
  Report Type: Report from Study
  Country: AU (occurrence: AU)
  Receive Date: 20130926
  Receipt Date: 20130926
  Transmission Date: 20140515
  Serious: Yes (Hospitalization)
  Sender: FDA-Public Use
  Company Number: PHHY2013AU072857

PATIENT
  Age: 43 Year
  Sex: Male

DRUGS (4)
  1. CLOZARIL [Suspect]
     Indication: SCHIZOPHRENIA
     Dosage: 500 MG
     Dates: start: 20030226, end: 20130604
  2. CLOZARIL [Suspect]
     Dosage: UNK
  3. RISPERDAL [Concomitant]
     Indication: SCHIZOPHRENIA
     Dosage: UNK
     Route: 048
     Dates: start: 20130606
  4. RISPERDAL [Concomitant]
     Indication: PSYCHOTIC DISORDER

REACTIONS (4)
  - Anxiety [Recovered/Resolved]
  - Malaise [Unknown]
  - Palpitations [Recovered/Resolved]
  - Paranoia [Unknown]
